FAERS Safety Report 9344052 (Version 3)
Quarter: 2013Q3

REPORT INFORMATION
  Report Type: Spontaneous
  Country: JP (occurrence: JP)
  Receive Date: 20130612
  Receipt Date: 20130722
  Transmission Date: 20140515
  Serious: Yes (Other)
  Sender: FDA-Public Use
  Company Number: JP-PFIZER INC-2013174585

PATIENT
  Sex: Female

DRUGS (2)
  1. NORVASC [Suspect]
     Indication: HYPERTENSION
     Dosage: UNK
     Route: 048
  2. NORMONAL [Concomitant]
     Dosage: UNK

REACTIONS (1)
  - Diabetes mellitus [Unknown]
